FAERS Safety Report 19156702 (Version 2)
Quarter: 2021Q2

REPORT INFORMATION
  Report Type: Spontaneous
  Country: US (occurrence: US)
  Receive Date: 20210420
  Receipt Date: 20210604
  Transmission Date: 20210717
  Serious: No
  Sender: FDA-Public Use
  Company Number: US-JNJFOC-20210344323

PATIENT
  Age: 9 Decade
  Sex: Female

DRUGS (2)
  1. TYLENOL [Suspect]
     Active Substance: ACETAMINOPHEN
     Indication: BACK PAIN
     Route: 065
  2. FLECTOR EP [Concomitant]
     Active Substance: DICLOFENAC EPOLAMINE
     Indication: BACK PAIN
     Route: 065
     Dates: start: 20181102

REACTIONS (1)
  - Drug ineffective [Unknown]
